FAERS Safety Report 23205110 (Version 3)
Quarter: 2024Q1

REPORT INFORMATION
  Report Type: Spontaneous
  Country: US (occurrence: US)
  Receive Date: 20231120
  Receipt Date: 20240301
  Transmission Date: 20240410
  Serious: Yes (Hospitalization)
  Sender: FDA-Public Use
  Company Number: US-SK LIFE SCIENCE, INC.-SKPVG-2023-001439

PATIENT

DRUGS (2)
  1. XCOPRI [Suspect]
     Active Substance: CENOBAMATE
     Indication: Epilepsy
     Dosage: TITRATION 1 PACK
     Route: 065
  2. XCOPRI [Suspect]
     Active Substance: CENOBAMATE
     Dosage: 50/100MG ONCE DAILY
     Route: 065
     Dates: start: 20231006

REACTIONS (3)
  - Hospitalisation [Unknown]
  - Product dose omission issue [Not Recovered/Not Resolved]
  - Hypersensitivity [Unknown]
